FAERS Safety Report 12888066 (Version 3)
Quarter: 2017Q1

REPORT INFORMATION
  Report Type: Spontaneous
  Country: JP (occurrence: JP)
  Receive Date: 20161027
  Receipt Date: 20170302
  Transmission Date: 20170428
  Serious: Yes (Hospitalization, Other)
  Sender: FDA-Public Use
  Company Number: JP-AMGEN-JPNSP2016146486

PATIENT
  Sex: Female

DRUGS (2)
  1. ENBREL [Suspect]
     Active Substance: ETANERCEPT
     Indication: PRODUCT USED FOR UNKNOWN INDICATION
     Dosage: UNK
     Route: 058
  2. METHOTREXATE. [Concomitant]
     Active Substance: METHOTREXATE
     Dosage: UNK
     Route: 065

REACTIONS (11)
  - Condition aggravated [Unknown]
  - Muscular weakness [Unknown]
  - Polyneuropathy [Unknown]
  - Exercise tolerance decreased [Unknown]
  - Contusion [Unknown]
  - Hypoglycaemia [Unknown]
  - Neurosis [Unknown]
  - Road traffic accident [Unknown]
  - Tremor [Unknown]
  - Suicidal ideation [Unknown]
  - Apathy [Unknown]

NARRATIVE: CASE EVENT DATE: 2013
